FAERS Safety Report 5417257-0 (Version None)
Quarter: 2007Q3

REPORT INFORMATION
  Report Type: 
  Country: None (occurrence: None)
  Receive Date: 20070816
  Receipt Date: 20070806
  Transmission Date: 20080115
  Serious: Yes (Death, Other)
  Sender: FDA-Public Use
  Company Number: US-SHR-US-2006-040055

PATIENT
  Age: 58 Year
  Sex: Male

DRUGS (2)
  1. BETASERON [Suspect]
     Indication: RELAPSING-REMITTING MULTIPLE SCLEROSIS
     Route: 058
     Dates: start: 19991201
  2. BETASERON [Suspect]
     Dosage: 8 MIU, EVERY 2D
     Route: 058
     Dates: start: 20000203, end: 20061114

REACTIONS (5)
  - ASPIRATION [None]
  - DYSPHAGIA [None]
  - ELECTIVE SURGERY [None]
  - MULTIPLE SCLEROSIS [None]
  - RESPIRATORY ARREST [None]
